FAERS Safety Report 26120825 (Version 1)
Quarter: 2025Q4

REPORT INFORMATION
  Report Type: Report from Study
  Country: PK (occurrence: PK)
  Receive Date: 20251204
  Receipt Date: 20251204
  Transmission Date: 20260118
  Serious: Yes (Death)
  Sender: ROCHE
  Company Number: PK-ROCHE-10000447780

PATIENT
  Age: 72 Year
  Sex: Female

DRUGS (1)
  1. AVASTIN [Suspect]
     Active Substance: BEVACIZUMAB
     Indication: Ovarian cancer metastatic
     Route: 042
     Dates: start: 20250711

REACTIONS (6)
  - Disease progression [Fatal]
  - Ascites [Fatal]
  - Hepatic failure [Fatal]
  - Abdominal pain [Unknown]
  - Asthenia [Unknown]
  - Fatigue [Unknown]

NARRATIVE: CASE EVENT DATE: 20250801
